FAERS Safety Report 17259107 (Version 1)
Quarter: 2020Q1

REPORT INFORMATION
  Report Type: Spontaneous
  Country: JP (occurrence: JP)
  Receive Date: 20200110
  Receipt Date: 20200110
  Transmission Date: 20200409
  Serious: Yes (Other)
  Sender: FDA-Public Use
  Company Number: JP-JNJFOC-20200105202

PATIENT
  Age: 29 Year
  Sex: Male

DRUGS (1)
  1. HALOPERIDOL. [Suspect]
     Active Substance: HALOPERIDOL
     Indication: AGITATION
     Route: 065

REACTIONS (3)
  - Dyspnoea [Recovered/Resolved]
  - Stridor [Recovered/Resolved]
  - Oromandibular dystonia [Recovered/Resolved]
